FAERS Safety Report 5745756-0 (Version None)
Quarter: 2008Q2

REPORT INFORMATION
  Report Type: 
  Country: None (occurrence: None)
  Receive Date: 20080519
  Receipt Date: 20080225
  Transmission Date: 20081010
  Serious: No
  Sender: FDA-Public Use
  Company Number: TPA2008A00252

PATIENT
  Age: 63 Year
  Sex: Male
  Weight: 83.9154 kg

DRUGS (14)
  1. ROZEREM [Suspect]
     Dosage: PER ORAL
  2. POTASSIUM (POTASSIUM) [Concomitant]
  3. LIPITOR [Concomitant]
  4. ASPIRIN [Concomitant]
  5. HYZAAR [Concomitant]
  6. DYNACIRC [Concomitant]
  7. MULTI-VITAMINS [Concomitant]
  8. FOLIC ACID [Concomitant]
  9. METHOTREXATE [Concomitant]
  10. PREDNISONE TAB [Concomitant]
  11. CALCIUM (CALCIUM) [Concomitant]
  12. CATAPRES [Concomitant]
  13. ADVAIR DISKUS 100/50 [Concomitant]
  14. MUCINEX [Concomitant]

REACTIONS (1)
  - DRUG INEFFECTIVE [None]
